FAERS Safety Report 19471605 (Version 6)
Quarter: 2023Q2

REPORT INFORMATION
  Report Type: Report from Study
  Country: US (occurrence: US)
  Receive Date: 20210629
  Receipt Date: 20230615
  Transmission Date: 20230722
  Serious: Yes (Hospitalization, Other)
  Sender: FDA-Public Use
  Company Number: US-JAZZ-2021-US-011332

PATIENT
  Age: 32 Year
  Sex: Male

DRUGS (23)
  1. XYWAV [Suspect]
     Active Substance: CALCIUM OXYBATE\MAGNESIUM OXYBATE\POTASSIUM OXYBATE\SODIUM OXYBATE
     Indication: Narcolepsy
     Dosage: 4.5 GRAM, BID
     Route: 048
     Dates: start: 202106, end: 20210617
  2. XYWAV [Suspect]
     Active Substance: CALCIUM OXYBATE\MAGNESIUM OXYBATE\POTASSIUM OXYBATE\SODIUM OXYBATE
     Indication: Cataplexy
  3. ZYPREXA [Suspect]
     Active Substance: OLANZAPINE
     Indication: Tachyphrenia
  4. VRAYLAR [Suspect]
     Active Substance: CARIPRAZINE
     Indication: Product used for unknown indication
  5. INVEGA [Suspect]
     Active Substance: PALIPERIDONE
     Indication: Product used for unknown indication
     Dosage: 1.5 MILLIGRAM, BID (IN MORNING)
  6. INVEGA [Suspect]
     Active Substance: PALIPERIDONE
     Dosage: 3 MILLIGRAM (AT NIGHT)
  7. INVEGA [Suspect]
     Active Substance: PALIPERIDONE
     Dosage: 1.5 MILLIGRAM (IN MORNING)
  8. LITHIUM [Suspect]
     Active Substance: LITHIUM
     Indication: Bipolar disorder
     Dosage: UNKNOWN DOSE
  9. PROVIGIL [Suspect]
     Active Substance: MODAFINIL
     Indication: Narcolepsy
     Dosage: UNK
  10. PROVIGIL [Suspect]
     Active Substance: MODAFINIL
     Dosage: DOSE CUT INTO HALF
  11. PROZAC [Suspect]
     Active Substance: FLUOXETINE HYDROCHLORIDE
     Indication: Product used for unknown indication
     Dosage: UNKNOWN DOSE
  12. ALLEGRA [Concomitant]
     Active Substance: FEXOFENADINE HYDROCHLORIDE
     Indication: Seasonal allergy
  13. FLONASE [Concomitant]
     Active Substance: FLUTICASONE PROPIONATE
     Indication: Hypersensitivity
  14. EFFEXOR [Concomitant]
     Active Substance: VENLAFAXINE HYDROCHLORIDE
     Indication: Anxiety
  15. EFFEXOR [Concomitant]
     Active Substance: VENLAFAXINE HYDROCHLORIDE
     Indication: Bipolar disorder
  16. EFFEXOR [Concomitant]
     Active Substance: VENLAFAXINE HYDROCHLORIDE
     Indication: Cataplexy
  17. MELATONIN [Concomitant]
     Active Substance: MELATONIN
     Indication: Product used for unknown indication
  18. ARNUITY ELLIPTA [Concomitant]
     Active Substance: FLUTICASONE FUROATE
     Indication: Product used for unknown indication
  19. VENTOLIN [Concomitant]
     Active Substance: ALBUTEROL SULFATE
     Indication: Product used for unknown indication
     Dosage: 0000
     Dates: start: 20120501
  20. VITAMINS NOS [Concomitant]
     Active Substance: VITAMINS
     Indication: Product used for unknown indication
     Dosage: GUMMIES
     Dates: start: 20210801
  21. FLOVENT HFA [Concomitant]
     Active Substance: FLUTICASONE PROPIONATE
     Indication: Product used for unknown indication
     Dosage: 0000
     Dates: start: 20210701
  22. LUNESTA [Concomitant]
     Active Substance: ESZOPICLONE
     Indication: Narcolepsy
     Dosage: UNK
     Dates: start: 20120101
  23. CLONAZEPAM [Concomitant]
     Active Substance: CLONAZEPAM
     Indication: Product used for unknown indication
     Dosage: UNK
     Dates: start: 20221001

REACTIONS (20)
  - Blood pressure increased [Recovering/Resolving]
  - Tachyphrenia [Recovered/Resolved]
  - Panic disorder [Recovering/Resolving]
  - Condition aggravated [Recovering/Resolving]
  - Serotonin syndrome [Not Recovered/Not Resolved]
  - Suicidal ideation [Recovered/Resolved]
  - Hallucination [Unknown]
  - Bipolar disorder [Not Recovered/Not Resolved]
  - Chest discomfort [Not Recovered/Not Resolved]
  - Feeling abnormal [Not Recovered/Not Resolved]
  - Mental disorder [Not Recovered/Not Resolved]
  - Weight increased [Unknown]
  - Fatigue [Unknown]
  - Somnolence [Not Recovered/Not Resolved]
  - Memory impairment [Not Recovered/Not Resolved]
  - Anxiety [Not Recovered/Not Resolved]
  - Hunger [Unknown]
  - Sedation [Not Recovered/Not Resolved]
  - Snoring [Unknown]
  - Product dose omission issue [Unknown]

NARRATIVE: CASE EVENT DATE: 20210601
